FAERS Safety Report 15053361 (Version 1)
Quarter: 2018Q2

REPORT INFORMATION
  Report Type: Report from Study
  Country: BR (occurrence: BR)
  Receive Date: 20180622
  Receipt Date: 20180622
  Transmission Date: 20180711
  Serious: Yes (Death, Other)
  Sender: FDA-Public Use
  Company Number: BR-BAYER-2018-113768

PATIENT
  Age: 51 Year
  Sex: Male

DRUGS (1)
  1. NEXAVAR [Suspect]
     Active Substance: SORAFENIB
     Indication: HEPATOCELLULAR CARCINOMA
     Dates: start: 20180411

REACTIONS (17)
  - Optic nerve injury [Fatal]
  - Fluid retention [Not Recovered/Not Resolved]
  - Cystitis [Fatal]
  - Tumour rupture [Not Recovered/Not Resolved]
  - Internal haemorrhage [Not Recovered/Not Resolved]
  - Hepatitis C [Not Recovered/Not Resolved]
  - Splenomegaly [Not Recovered/Not Resolved]
  - Jaundice [Fatal]
  - Myocardial infarction [Not Recovered/Not Resolved]
  - Urinary retention [Not Recovered/Not Resolved]
  - Tumour haemorrhage [Not Recovered/Not Resolved]
  - Exophthalmos [Not Recovered/Not Resolved]
  - Back pain [Not Recovered/Not Resolved]
  - Decreased appetite [Not Recovered/Not Resolved]
  - Bradycardia [Not Recovered/Not Resolved]
  - Abdominal pain [Not Recovered/Not Resolved]
  - Abdominal pain upper [Not Recovered/Not Resolved]

NARRATIVE: CASE EVENT DATE: 2018
